FAERS Safety Report 6304615-5 (Version None)
Quarter: 2009Q3

REPORT INFORMATION
  Report Type: 
  Country: None (occurrence: None)
  Receive Date: 20090811
  Receipt Date: 20090804
  Transmission Date: 20100115
  Serious: No
  Sender: FDA-Public Use
  Company Number: US-JNJFOC-20090801902

PATIENT
  Sex: Female
  Weight: 72.58 kg

DRUGS (3)
  1. FENTANYL TRANSDERMAL SYSTEM [Suspect]
     Indication: BACK PAIN
     Route: 062
  2. TIAZAC [Concomitant]
     Indication: HYPERTENSION
     Route: 048
  3. AVALIDE [Concomitant]
     Indication: HYPERTENSION
     Route: 048

REACTIONS (2)
  - APPLICATION SITE RASH [None]
  - INAPPROPRIATE SCHEDULE OF DRUG ADMINISTRATION [None]
